FAERS Safety Report 13278998 (Version 1)
Quarter: 2017Q1

REPORT INFORMATION
  Report Type: Spontaneous
  Country: US (occurrence: US)
  Receive Date: 20170228
  Receipt Date: 20170228
  Transmission Date: 20170428
  Serious: No
  Sender: FDA-Public Use
  Company Number: US-ALLERGAN-1000085282

PATIENT
  Age: 37 Year

DRUGS (6)
  1. TIZANIDINE. [Concomitant]
     Active Substance: TIZANIDINE
     Dosage: UNK UNK, QD
  2. TOLEDOMIN [Suspect]
     Active Substance: MILNACIPRAN HYDROCHLORIDE
     Dosage: 2.5 MG, QD
  3. ZYRTEC [Concomitant]
     Active Substance: CETIRIZINE HYDROCHLORIDE
     Dosage: UNK UNK, QD
  4. RESTASIS [Concomitant]
     Active Substance: CYCLOSPORINE
     Dosage: 1 DROP PER EYE PER DAY
     Route: 031
  5. SINGULAIR [Concomitant]
     Active Substance: MONTELUKAST SODIUM
     Dosage: UNK UNK, QD
  6. TOLEDOMIN [Suspect]
     Active Substance: MILNACIPRAN HYDROCHLORIDE
     Dosage: 2.5 MG, UNK
     Dates: start: 20160517, end: 20160525

REACTIONS (9)
  - Unevaluable event [Recovering/Resolving]
  - Rash [Unknown]
  - Flushing [Recovering/Resolving]
  - Inflammation [Recovering/Resolving]
  - Intentional product misuse [Recovered/Resolved]
  - Erythema [Recovering/Resolving]
  - Skin irritation [Recovering/Resolving]
  - Eating disorder [Recovering/Resolving]
  - Headache [Recovering/Resolving]

NARRATIVE: CASE EVENT DATE: 20160517
